FAERS Safety Report 7822306-6 (Version None)
Quarter: 2011Q4

REPORT INFORMATION
  Report Type: 
  Country: None (occurrence: None)
  Receive Date: 20111018
  Receipt Date: 20101229
  Transmission Date: 20120403
  Serious: No
  Sender: FDA-Public Use
  Company Number: US-ASTRAZENECA-2010SE61283

PATIENT
  Sex: Female

DRUGS (8)
  1. BLOOD PRESSURE MEDS [Concomitant]
  2. FLUID PILL [Concomitant]
  3. ANTIDEPRESSANT [Concomitant]
  4. SYMBICORT [Suspect]
     Indication: ASTHMA
     Dosage: 80-4.5 MCGS 2 BID
     Route: 055
     Dates: start: 20101215
  5. SYMBICORT [Suspect]
     Dosage: 160-4.5 MCGS BID
     Route: 055
  6. VYTORIN [Concomitant]
  7. POTASSIUM [Concomitant]
  8. VITAMIN TAB [Concomitant]

REACTIONS (1)
  - DYSPNOEA EXERTIONAL [None]
